FAERS Safety Report 7748783-7 (Version None)
Quarter: 2011Q3

REPORT INFORMATION
  Report Type: 
  Country: None (occurrence: None)
  Receive Date: 20110913
  Receipt Date: 20110913
  Transmission Date: 20111222
  Serious: No
  Sender: FDA-Public Use
  Company Number: None

PATIENT
  Age: 87 Year
  Sex: Male
  Weight: 65.2 kg

DRUGS (2)
  1. HEPARIN SODIUM 1,000 UNITS IN DEXTROSE 5% [Suspect]
     Dosage: IV
     Route: 042
     Dates: start: 20110423, end: 20110425
  2. ASPIRIN [Suspect]
     Dosage: EVERY DAY PO
     Route: 048
     Dates: start: 20110423, end: 20110425

REACTIONS (3)
  - HYPOTENSION [None]
  - HAEMATOCRIT DECREASED [None]
  - CONFUSIONAL STATE [None]
